FAERS Safety Report 7247341-0 (Version None)
Quarter: 2011Q1

REPORT INFORMATION
  Report Type: 
  Country: None (occurrence: None)
  Receive Date: 20110127
  Receipt Date: 20110126
  Transmission Date: 20110831
  Serious: Yes (Hospitalization)
  Sender: FDA-Public Use
  Company Number: NO-PFIZER INC-2011003504

PATIENT
  Age: 60 Year
  Sex: Male

DRUGS (6)
  1. MICARDIS [Concomitant]
     Dosage: 80 MG, UNK
  2. SIMVASTATIN [Concomitant]
     Dosage: 20 MG, UNK
  3. PLENDIL [Concomitant]
     Dosage: 10 MG, UNK
  4. ALBYL-E [Suspect]
     Dosage: 75 MG, UNK
  5. CARVEDILOL [Concomitant]
     Dosage: 25 MG, 2X/DAY
  6. ALDACTONE [Suspect]
     Dosage: 25 MG, 1X/DAY

REACTIONS (1)
  - EPISTAXIS [None]
